FAERS Safety Report 18261265 (Version 1)
Quarter: 2020Q3

REPORT INFORMATION
  Report Type: Spontaneous
  Country: DE (occurrence: DE)
  Receive Date: 20200914
  Receipt Date: 20200914
  Transmission Date: 20201103
  Serious: Yes (Other)
  Sender: FDA-Public Use
  Company Number: NVSC2020DE249255

PATIENT
  Age: 60 Year
  Sex: Male

DRUGS (1)
  1. ENTRESTO [Suspect]
     Active Substance: SACUBITRIL\VALSARTAN
     Indication: PRODUCT USED FOR UNKNOWN INDICATION
     Dosage: 50 MG, QD (6 DF QD)
     Route: 065
     Dates: start: 201810, end: 201905

REACTIONS (5)
  - Electrocardiogram QRS complex prolonged [Unknown]
  - Diarrhoea [Unknown]
  - Hypotension [Unknown]
  - Ejection fraction abnormal [Unknown]
  - Inappropriate schedule of product administration [Unknown]
